FAERS Safety Report 10363035 (Version 2)
Quarter: 2014Q3

REPORT INFORMATION
  Report Type: Report from Study
  Country: US (occurrence: US)
  Receive Date: 20140805
  Receipt Date: 20140811
  Transmission Date: 20150326
  Serious: Yes (Hospitalization)
  Sender: FDA-Public Use
  Company Number: US-SA-2014SA102288

PATIENT
  Age: 47 Year
  Sex: Male

DRUGS (3)
  1. SOLOSTAR [Concomitant]
     Active Substance: DEVICE
     Indication: DIABETES MELLITUS
     Dates: start: 2010
  2. LANTUS SOLOSTAR [Suspect]
     Active Substance: INSULIN GLARGINE
     Indication: DIABETES MELLITUS
     Dosage: DOSE:60 UNIT(S)
     Route: 065
     Dates: start: 201006
  3. NOVOLOG [Concomitant]
     Active Substance: INSULIN ASPART

REACTIONS (6)
  - Asthenia [Not Recovered/Not Resolved]
  - Retinal detachment [Unknown]
  - Visual acuity reduced [Unknown]
  - Coronary artery bypass [Unknown]
  - Paraesthesia [Unknown]
  - Weight increased [Unknown]

NARRATIVE: CASE EVENT DATE: 20121220
